FAERS Safety Report 22726761 (Version 7)
Quarter: 2024Q3

REPORT INFORMATION
  Report Type: Spontaneous
  Country: GB (occurrence: GB)
  Receive Date: 20230720
  Receipt Date: 20240909
  Transmission Date: 20241017
  Serious: Yes (Hospitalization, Disabling, Other)
  Sender: SANDOZ
  Company Number: None

PATIENT
  Age: 37 Year
  Sex: Male

DRUGS (81)
  1. ARIPIPRAZOLE [Suspect]
     Active Substance: ARIPIPRAZOLE
     Dosage: 400 MG, VERY VERY HIGH- AT LEAST 400 MG, FOR YEARS
     Route: 065
     Dates: start: 20090101
  2. ARIPIPRAZOLE [Suspect]
     Active Substance: ARIPIPRAZOLE
     Dosage: UNK (DOSE INCREASED)
     Route: 065
  3. ARIPIPRAZOLE [Suspect]
     Active Substance: ARIPIPRAZOLE
     Dosage: UNK (DOSE INCREASED)
     Route: 065
  4. ARIPIPRAZOLE [Suspect]
     Active Substance: ARIPIPRAZOLE
     Dosage: UNK, UNK
     Route: 065
  5. ARIPIPRAZOLE [Suspect]
     Active Substance: ARIPIPRAZOLE
     Dosage: UNK, UNK
     Route: 065
  6. ARIPIPRAZOLE [Suspect]
     Active Substance: ARIPIPRAZOLE
     Dosage: VERY VERY HIGH- AT LEAST 400 MG, FOR YEARS
     Route: 065
     Dates: start: 20090101
  7. ARIPIPRAZOLE [Suspect]
     Active Substance: ARIPIPRAZOLE
     Dosage: VERY VERY HIGH- AT LEAST 400 MG, FOR YEARS
     Route: 065
  8. ARIPIPRAZOLE [Suspect]
     Active Substance: ARIPIPRAZOLE
     Dosage: VERY VERY HIGH- AT LEAST 400 MG, FOR YEARS
     Route: 065
  9. ARIPIPRAZOLE [Suspect]
     Active Substance: ARIPIPRAZOLE
     Dosage: VERY VERY HIGH- AT LEAST 400 MG, FOR YEARS
     Route: 065
  10. ARIPIPRAZOLE [Suspect]
     Active Substance: ARIPIPRAZOLE
     Dosage: VERY VERY HIGH- AT LEAST 400 MG, FOR YEARS
     Route: 065
  11. ARIPIPRAZOLE [Suspect]
     Active Substance: ARIPIPRAZOLE
     Dosage: SUSPENSION FOR INJECTION (OCCLUSIVE DRESSING TECH
     Route: 065
  12. ARIPIPRAZOLE [Suspect]
     Active Substance: ARIPIPRAZOLE
     Dosage: SUSPENSION FOR INJECTION (OCCLUSIVE DRESSING TECH
     Route: 065
  13. ARIPIPRAZOLE [Suspect]
     Active Substance: ARIPIPRAZOLE
     Dosage: SUSPENSION FOR INJECTION (OCCLUSIVE DRESSING TECH; ;
     Route: 065
  14. ARIPIPRAZOLE [Suspect]
     Active Substance: ARIPIPRAZOLE
     Indication: Product used for unknown indication
     Dosage: UNK
     Route: 065
  15. ABILIFY MAINTENA [Suspect]
     Active Substance: ARIPIPRAZOLE
     Dosage: 400 MG  (VERY VERY HIGH- AT LEAST 400 MG, FOR YR)
     Route: 065
     Dates: start: 20090101
  16. ABILIFY MAINTENA [Suspect]
     Active Substance: ARIPIPRAZOLE
     Dosage: 400 MG  (VERY VERY HIGH- AT LEAST 400 MG, FOR YR)
     Route: 065
  17. ABILIFY MAINTENA [Suspect]
     Active Substance: ARIPIPRAZOLE
     Dosage: 400 MG (VERY VERY HIGH- AT LEAST 400 MG, FOR YR)
     Route: 065
  18. ABILIFY MAINTENA [Suspect]
     Active Substance: ARIPIPRAZOLE
     Indication: Product used for unknown indication
     Dosage: 400 MG,  UNK (VERY VERY HIGH- AT LEAST 400 MG, FOR YEARS)
     Route: 065
     Dates: start: 20090101
  19. ABILIFY MAINTENA [Suspect]
     Active Substance: ARIPIPRAZOLE
     Dosage: 400 MG, OTHER (VERY VERY HIGH, AT LEAST 400 MG, FOR YEARS)
     Route: 065
  20. ABILIFY MAINTENA [Suspect]
     Active Substance: ARIPIPRAZOLE
     Dosage: 400 MG, OTHER (VERY VERY HIGH, AT LEAST 400 MG, FOR YEARS)
     Route: 065
  21. ABILIFY MAINTENA [Suspect]
     Active Substance: ARIPIPRAZOLE
     Indication: Adverse drug reaction
     Dosage: 400 MG (VERY VERY HIGH- AT LEAST 400 MG, FOR YR)
     Route: 065
  22. ABILIFY MAINTENA [Suspect]
     Active Substance: ARIPIPRAZOLE
     Indication: Product used for unknown indication
     Dosage: 400 MG (VERY VERY HIGH- AT LEAST 400 MG, FOR YR)
     Route: 065
  23. ABILIFY MAINTENA [Suspect]
     Active Substance: ARIPIPRAZOLE
     Dosage: 400 MG (VERY VERY HIGH- AT LEAST 400 MG, FOR YR)
     Route: 065
  24. ABILIFY MAINTENA [Suspect]
     Active Substance: ARIPIPRAZOLE
     Dosage: 400 MG (VERY VERY HIGH- AT LEAST 400 MG, FOR YR)
     Route: 065
  25. ABILIFY MAINTENA [Suspect]
     Active Substance: ARIPIPRAZOLE
     Dosage: 400 MG (VERY VERY HIGH- AT LEAST 400 MG, FOR YR)
     Route: 065
  26. ABILIFY MAINTENA [Suspect]
     Active Substance: ARIPIPRAZOLE
     Dosage: OCCLUSIVE DRESSING TECHNIQUE
     Route: 065
  27. ABILIFY MAINTENA [Suspect]
     Active Substance: ARIPIPRAZOLE
     Dosage: UNK (DOSE INCREASED)
     Route: 065
  28. ABILIFY MAINTENA [Suspect]
     Active Substance: ARIPIPRAZOLE
     Dosage: UNK (DOSE INCREASED)
     Route: 065
  29. ARIPIPRAZOLE [Suspect]
     Active Substance: ARIPIPRAZOLE
     Indication: Product used for unknown indication
     Dosage: 400 MG, (VERY VERY HIGH- AT LEAST 400 MG, FOR YEARS)
     Route: 065
     Dates: start: 20090101
  30. ARIPIPRAZOLE [Suspect]
     Active Substance: ARIPIPRAZOLE
     Dosage: UNK
     Route: 065
  31. ARIPIPRAZOLE [Suspect]
     Active Substance: ARIPIPRAZOLE
     Dosage: UNK (DOSE INCREASED)
     Route: 065
  32. ARIPIPRAZOLE [Suspect]
     Active Substance: ARIPIPRAZOLE
     Dosage: 400 MG  (AT LEAST 400 MG)
     Route: 065
     Dates: start: 20090101
  33. ARIPIPRAZOLE [Suspect]
     Active Substance: ARIPIPRAZOLE
     Dosage: 400 MG, (VERY VERY HIGH- AT LEAST 400 MG, FOR YEARS)
     Route: 065
  34. ARIPIPRAZOLE [Suspect]
     Active Substance: ARIPIPRAZOLE
     Dosage: 400 MG, (VERY VERY HIGH- AT LEAST 400 MG, FOR YEARS)
     Route: 065
  35. ARIPIPRAZOLE [Suspect]
     Active Substance: ARIPIPRAZOLE
     Dosage: 400 MILLIGRAM (AT LEAST 400 MG)
     Route: 065
  36. ARIPIPRAZOLE [Suspect]
     Active Substance: ARIPIPRAZOLE
     Dosage: 400 MILLIGRAM (AT LEAST 400 MG)
     Route: 065
  37. ARIPIPRAZOLE [Suspect]
     Active Substance: ARIPIPRAZOLE
     Dosage: 400 MILLIGRAM (VERY VERY HIGH- AT LEAST 400 MG, FOR YEARS)
     Route: 065
  38. ARIPIPRAZOLE [Suspect]
     Active Substance: ARIPIPRAZOLE
     Dosage: 400 MILLIGRAM (VERY VERY HIGH- AT LEAST 400 MG, FOR YEARS)
     Route: 065
  39. ARIPIPRAZOLE [Suspect]
     Active Substance: ARIPIPRAZOLE
     Dosage: UNK (DOSE INCREASED)
     Route: 065
  40. ARIPIPRAZOLE [Suspect]
     Active Substance: ARIPIPRAZOLE
     Dosage: UNK (DOSE INCREASED)
     Route: 065
  41. ARIPIPRAZOLE [Suspect]
     Active Substance: ARIPIPRAZOLE
     Dosage: UNK (DOSE INCREASED)
     Route: 065
  42. ARIPIPRAZOLE [Suspect]
     Active Substance: ARIPIPRAZOLE
     Indication: Product used for unknown indication
     Dosage: 400 MILLIGRAM (AT LEAST 400 MG)
     Route: 065
     Dates: start: 20090101
  43. ARIPIPRAZOLE [Suspect]
     Active Substance: ARIPIPRAZOLE
     Dosage: 400 MILLIGRAM (AT LEAST 400 MG)
     Route: 065
  44. ARIPIPRAZOLE [Suspect]
     Active Substance: ARIPIPRAZOLE
     Indication: Product used for unknown indication
     Dosage: AT LEAST 400 MG
     Route: 065
  45. ARIPIPRAZOLE [Suspect]
     Active Substance: ARIPIPRAZOLE
     Indication: Product used for unknown indication
     Dosage: UNK (DOSE INCREASED)
     Route: 065
  46. ARIPIPRAZOLE [Suspect]
     Active Substance: ARIPIPRAZOLE
     Dosage: UNK (DOSE INCREASED)
     Route: 065
  47. CLOZAPINE [Suspect]
     Active Substance: CLOZAPINE
     Indication: Product used for unknown indication
     Dosage: UNK (OCCLUSIVE DRESSING TECHNIQUE)
     Route: 065
  48. CLOZAPINE [Suspect]
     Active Substance: CLOZAPINE
     Dosage: UNK,  UNK (OCCLUSIVE DRESSING TECHNIQUE)
     Route: 065
  49. CLOZAPINE [Suspect]
     Active Substance: CLOZAPINE
     Dosage: UNK,  UNK (OCCLUSIVE DRESSING TECHNIQUE)
     Route: 065
  50. CLOZAPINE [Suspect]
     Active Substance: CLOZAPINE
     Indication: Product used for unknown indication
     Dosage: OCCLUSIVE DRESSING TECHNIQUE
     Route: 065
  51. CLOZAPINE [Suspect]
     Active Substance: CLOZAPINE
     Dosage: OCCLUSIVE DRESSING TECHNIQUE
     Route: 065
  52. CLOZAPINE [Suspect]
     Active Substance: CLOZAPINE
     Dosage: OCCLUSIVE DRESSING TECHNIQUE
     Route: 065
  53. CLOZAPINE [Suspect]
     Active Substance: CLOZAPINE
     Dosage: OCCLUSIVE DRESSING TECHNIQUE
     Route: 065
  54. CLOZAPINE [Suspect]
     Active Substance: CLOZAPINE
     Dosage: OCCLUSIVE DRESSING TECHNIQUE
     Route: 065
  55. CLOZAPINE [Suspect]
     Active Substance: CLOZAPINE
     Dosage: OCCLUSIVE DRESSING TECHNIQUE
     Route: 065
  56. CLOZAPINE [Suspect]
     Active Substance: CLOZAPINE
     Dosage: OCCLUSIVE DRESSING TECHNIQUE
     Route: 065
  57. CLOZAPINE [Suspect]
     Active Substance: CLOZAPINE
     Dosage: OCCLUSIVE DRESSING TECHNIQUE
     Route: 065
  58. CLOZAPINE [Suspect]
     Active Substance: CLOZAPINE
     Dosage: OCCLUSIVE DRESSING TECHNIQUE, DOSE INCREASED
     Route: 065
  59. CLOZAPINE [Suspect]
     Active Substance: CLOZAPINE
     Dosage: OCCLUSIVE DRESSING TECHNIQUE, DOSE INCREASED
     Route: 065
  60. CLOZAPINE [Suspect]
     Active Substance: CLOZAPINE
     Dosage: OCCLUSIVE DRESSING TECHNIQUE, DOSE INCREASED
     Route: 065
  61. CLOZAPINE [Suspect]
     Active Substance: CLOZAPINE
     Dosage: OCCLUSIVE DRESSING TECHNIQUE, DOSE INCREASED
     Route: 065
  62. CLOZAPINE [Suspect]
     Active Substance: CLOZAPINE
     Dosage: OCCLUSIVE DRESSING TECHNIQUE, DOSE INCREASED
     Route: 065
  63. OLANZAPINE [Suspect]
     Active Substance: OLANZAPINE
     Indication: Adverse drug reaction
     Dosage: 120 MG, UNK (VERY VERY HIGH)
     Route: 065
     Dates: start: 20140301
  64. OLANZAPINE [Suspect]
     Active Substance: OLANZAPINE
     Indication: Product used for unknown indication
     Dosage: (OCCLUSIVE DRESSING TECHNIQUE)
     Route: 065
  65. OLANZAPINE [Suspect]
     Active Substance: OLANZAPINE
     Dosage: VERY VERY HIGH
     Route: 065
     Dates: start: 20140301
  66. OLANZAPINE [Suspect]
     Active Substance: OLANZAPINE
     Indication: Product used for unknown indication
     Dosage: OCCLUSIVE DRESSING TECHNIQUE
     Route: 065
  67. OLANZAPINE [Suspect]
     Active Substance: OLANZAPINE
     Dosage: OCCLUSIVE DRESSING TECHNIQUE
     Route: 065
  68. OLANZAPINE [Suspect]
     Active Substance: OLANZAPINE
     Dosage: OCCLUSIVE DRESSING TECHNIQUE
     Route: 065
  69. OLANZAPINE [Suspect]
     Active Substance: OLANZAPINE
     Dosage: OCCLUSIVE DRESSING TECHNIQUE
     Route: 065
  70. OLANZAPINE [Suspect]
     Active Substance: OLANZAPINE
     Dosage: OCCLUSIVE DRESSING TECHNIQUE
     Route: 065
  71. OLANZAPINE [Suspect]
     Active Substance: OLANZAPINE
     Dosage: OCCLUSIVE DRESSING TECHNIQUE
     Route: 065
  72. OLANZAPINE [Suspect]
     Active Substance: OLANZAPINE
     Dosage: OCCLUSIVE DRESSING TECHNIQUE
     Route: 065
  73. OLANZAPINE [Suspect]
     Active Substance: OLANZAPINE
     Dosage: OCCLUSIVE DRESSING TECHNIQUE, DOSE DECREASE
     Route: 065
  74. OLANZAPINE [Suspect]
     Active Substance: OLANZAPINE
     Dosage: OCCLUSIVE DRESSING TECHNIQUE, DOSE DECREASE
     Route: 065
  75. OLANZAPINE [Suspect]
     Active Substance: OLANZAPINE
     Dosage: OCCLUSIVE DRESSING TECHNIQUE, DOSE DECREASE
     Route: 065
  76. OLANZAPINE [Suspect]
     Active Substance: OLANZAPINE
     Dosage: OCCLUSIVE DRESSING TECHNIQUE, DOSE DECREASE
     Route: 065
  77. OLANZAPINE [Suspect]
     Active Substance: OLANZAPINE
     Dosage: OCCLUSIVE DRESSING TECHNIQUE, DOSE DECREASE
     Route: 065
  78. OLANZAPINE [Suspect]
     Active Substance: OLANZAPINE
     Dosage: OCCLUSIVE DRESSING TECHNIQUE; ;
     Route: 065
  79. OLANZAPINE [Suspect]
     Active Substance: OLANZAPINE
     Dosage: 120 MG (VERY VERY HIGH )
     Route: 065
     Dates: start: 20140301
  80. OLANZAPINE [Suspect]
     Active Substance: OLANZAPINE
     Dosage: OCCLUSIVE DRESSING TECHNIQUE, DOSE DECREASE
     Route: 065
  81. OLANZAPINE [Suspect]
     Active Substance: OLANZAPINE
     Indication: Product used for unknown indication
     Dosage: UNK, UNK
     Route: 065

REACTIONS (25)
  - Akathisia [Unknown]
  - Discomfort [Not Recovered/Not Resolved]
  - Lethargy [Unknown]
  - Scratch [Unknown]
  - Pruritus [Unknown]
  - Injection site pain [Unknown]
  - Pain [Unknown]
  - Visual impairment [Unknown]
  - Irritability [Unknown]
  - Personality change [Unknown]
  - Anxiety [Unknown]
  - Irritable bowel syndrome [Unknown]
  - Pollakiuria [Unknown]
  - Tension [Unknown]
  - Musculoskeletal stiffness [Unknown]
  - Loss of personal independence in daily activities [Unknown]
  - Skin irritation [Unknown]
  - Diabetes mellitus [Unknown]
  - Diarrhoea [Not Recovered/Not Resolved]
  - Weight increased [Unknown]
  - Somnolence [Unknown]
  - Diarrhoea [Not Recovered/Not Resolved]
  - Diarrhoea [Not Recovered/Not Resolved]
  - Product prescribing error [Unknown]
  - Product use in unapproved indication [Unknown]

NARRATIVE: CASE EVENT DATE: 20090101
